FAERS Safety Report 5260787-5 (Version None)
Quarter: 2007Q1

REPORT INFORMATION
  Report Type: 
  Country: None (occurrence: None)
  Receive Date: 20070309
  Receipt Date: 20070227
  Transmission Date: 20070707
  Serious: Yes (Hospitalization)
  Sender: FDA-Public Use
  Company Number: US-MERCK-0703USA00756

PATIENT
  Age: 53 Year
  Sex: Female

DRUGS (7)
  1. CANCIDAS [Suspect]
     Route: 065
  2. ESOMEPRAZOLE [Concomitant]
     Route: 065
  3. CEFTAZIDIME [Concomitant]
     Route: 065
  4. VANCOMYCIN [Concomitant]
     Route: 065
  5. METRONIDAZOLE [Concomitant]
     Route: 065
  6. DIPHENHYDRAMINE HYDROCHLORIDE [Concomitant]
     Route: 065
  7. SERTRALINE HYDROCHLORIDE [Concomitant]
     Route: 065

REACTIONS (2)
  - LUNG DISORDER [None]
  - VENTRICULAR TACHYCARDIA [None]
